FAERS Safety Report 5912772-5 (Version None)
Quarter: 2008Q4

REPORT INFORMATION
  Report Type: 
  Country: None (occurrence: None)
  Receive Date: 20081008
  Receipt Date: 20080506
  Transmission Date: 20090506
  Serious: No
  Sender: FDA-Public Use
  Company Number: US-ABBOTT-08P-163-0450556-00

PATIENT
  Age: 88 Year
  Sex: Male

DRUGS (3)
  1. DEPAKOTE [Suspect]
     Indication: ABNORMAL BEHAVIOUR
     Dosage: 3-125MG CAPS IN AM, 2-125MG CAPS AT NOON, 3-125 MG CAPS AT HS
     Route: 048
     Dates: start: 20070101
  2. DAILY VITAMINS [Concomitant]
     Indication: MEDICAL DIET
     Route: 048
  3. LORAZEPAM [Concomitant]
     Indication: ABNORMAL BEHAVIOUR
     Route: 048

REACTIONS (1)
  - MEDICATION RESIDUE [None]
